FAERS Safety Report 20026822 (Version 2)
Quarter: 2021Q4

REPORT INFORMATION
  Report Type: Spontaneous
  Country: US (occurrence: US)
  Receive Date: 20211103
  Receipt Date: 20211108
  Transmission Date: 20220303
  Serious: No
  Sender: FDA-Public Use
  Company Number: US-GLAXOSMITHKLINE-USCH2021076951

PATIENT

DRUGS (2)
  1. ALLI [Suspect]
     Active Substance: ORLISTAT
     Indication: Irritable bowel syndrome
     Dosage: UNK
  2. ALLI [Suspect]
     Active Substance: ORLISTAT
     Indication: Constipation

REACTIONS (5)
  - Constipation [Unknown]
  - Faeces discoloured [Unknown]
  - Product use in unapproved indication [Unknown]
  - Suspected counterfeit product [Unknown]
  - Product complaint [Unknown]
